FAERS Safety Report 9424720 (Version 3)
Quarter: 2014Q1

REPORT INFORMATION
  Report Type: Report from Study
  Country: US (occurrence: US)
  Receive Date: 20130729
  Receipt Date: 20140207
  Transmission Date: 20141002
  Serious: Yes (Hospitalization, Other)
  Sender: FDA-Public Use
  Company Number: US-ALEXION PHARMACEUTICALS INC.-A201301688

PATIENT
  Age: 11 Year
  Sex: Female

DRUGS (1)
  1. SOLIRIS [Suspect]
     Indication: HAEMOLYTIC URAEMIC SYNDROME
     Dosage: UNK
     Dates: start: 201206, end: 201210

REACTIONS (6)
  - Renal transplant [Recovered/Resolved]
  - Thrombotic microangiopathy [Not Recovered/Not Resolved]
  - Blood creatinine [Unknown]
  - Retinal haemorrhage [Unknown]
  - Hypertension [Unknown]
  - Gastrooesophageal reflux disease [Unknown]
